FAERS Safety Report 4289279-7 (Version None)
Quarter: 2004Q1

REPORT INFORMATION
  Report Type: 
  Country: None (occurrence: None)
  Receive Date: 20040203
  Receipt Date: 19990120
  Transmission Date: 20041129
  Serious: Yes (Other)
  Sender: FDA-Public Use
  Company Number: 1999-005

PATIENT
  Age: 43 Year
  Sex: Male

DRUGS (2)
  1. DORYX [Suspect]
     Indication: RESPIRATORY TRACT INFECTION
     Dosage: 200 MG ONCE ORAL
     Route: 048
     Dates: start: 19990119, end: 19990119
  2. OTC DECONGESTANTS AND PAIN RELEIVERS [Concomitant]

REACTIONS (2)
  - DIARRHOEA [None]
  - DIZZINESS [None]
